FAERS Safety Report 6482715-7 (Version None)
Quarter: 2009Q4

REPORT INFORMATION
  Report Type: 
  Country: None (occurrence: None)
  Receive Date: 20091209
  Receipt Date: 20091202
  Transmission Date: 20100525
  Serious: Yes (Hospitalization)
  Sender: FDA-Public Use
  Company Number: US-WYE-H12458009

PATIENT
  Sex: Female

DRUGS (7)
  1. ZOSYN [Suspect]
     Indication: EMPYEMA
     Dosage: UNKNOWN
     Route: 042
     Dates: end: 20091125
  2. MORPHINE [Concomitant]
  3. DILANTIN [Concomitant]
  4. NAFCILLIN [Concomitant]
  5. NEXIUM [Concomitant]
  6. CIPROFLOXACIN [Concomitant]
  7. NORVASC [Concomitant]

REACTIONS (3)
  - BLOOD ALBUMIN INCREASED [None]
  - BLOOD BILIRUBIN INCREASED [None]
  - INTERNATIONAL NORMALISED RATIO INCREASED [None]
